FAERS Safety Report 24627121 (Version 3)
Quarter: 2025Q3

REPORT INFORMATION
  Report Type: Report from Study
  Country: US (occurrence: US)
  Receive Date: 20241116
  Receipt Date: 20250810
  Transmission Date: 20251020
  Serious: Yes (Hospitalization)
  Sender: ALEXION PHARMACEUTICALS
  Company Number: 2024A126030, 2024A082415, 2024A000392

PATIENT
  Sex: Male

DRUGS (14)
  1. FASENRA [Suspect]
     Active Substance: BENRALIZUMAB
     Indication: Asthma
  2. SYMBICORT [Suspect]
     Active Substance: BUDESONIDE\FORMOTEROL FUMARATE DIHYDRATE
  3. SEROQUEL [Concomitant]
     Active Substance: QUETIAPINE FUMARATE
  4. OMEPRAZOLE [Concomitant]
     Active Substance: OMEPRAZOLE
  5. ALBUTEROL [Concomitant]
     Active Substance: ALBUTEROL
  6. ELIQUIS [Concomitant]
     Active Substance: APIXABAN
  7. METOPROLOL [Concomitant]
     Active Substance: METOPROLOL
  8. ALLOPURINOL [Concomitant]
     Active Substance: ALLOPURINOL
  9. ASPIRIN [Concomitant]
     Active Substance: ASPIRIN
  10. FUROSEMIDE [Concomitant]
     Active Substance: FUROSEMIDE
  11. GABAPENTIN [Concomitant]
     Active Substance: GABAPENTIN
  12. LEVOTHYROXINE [Concomitant]
     Active Substance: LEVOTHYROXINE
  13. METHOCARBAMOL [Concomitant]
     Active Substance: METHOCARBAMOL
  14. MONTELUKAST [Concomitant]
     Active Substance: MONTELUKAST

REACTIONS (2)
  - Haematological infection [Unknown]
  - Depression [Unknown]
